FAERS Safety Report 23865105 (Version 2)
Quarter: 2024Q2

REPORT INFORMATION
  Report Type: Spontaneous
  Country: JP (occurrence: JP)
  Receive Date: 20240517
  Receipt Date: 20240531
  Transmission Date: 20240716
  Serious: Yes (Other)
  Sender: FDA-Public Use
  Company Number: JP-NBI-BJ202408593

PATIENT
  Age: 72 Year
  Sex: Male
  Weight: 59 kg

DRUGS (2)
  1. OFEV [Suspect]
     Active Substance: NINTEDANIB
     Indication: Interstitial lung disease
     Route: 065
  2. UFT [Concomitant]
     Active Substance: TEGAFUR\URACIL
     Indication: Product used for unknown indication
     Route: 065

REACTIONS (1)
  - Lung carcinoma cell type unspecified recurrent [Recovering/Resolving]
